FAERS Safety Report 24647518 (Version 1)
Quarter: 2024Q4

REPORT INFORMATION
  Report Type: Spontaneous
  Country: US (occurrence: None)
  Receive Date: 20241121
  Receipt Date: 20241121
  Transmission Date: 20250115
  Serious: Yes (Hospitalization)
  Sender: Public
  Company Number: None

PATIENT
  Sex: Male

DRUGS (9)
  1. EMGALITY [Suspect]
     Active Substance: GALCANEZUMAB-GNLM
     Route: 058
     Dates: start: 20220322
  2. CIMZIA [Concomitant]
     Active Substance: CERTOLIZUMAB PEGOL
  3. LEFLUNOMIDE [Concomitant]
     Active Substance: LEFLUNOMIDE
  4. LEVOTHYROXINE [Concomitant]
     Active Substance: LEVOTHYROXINE
  5. LOSARTAN POTASSIUM [Concomitant]
     Active Substance: LOSARTAN POTASSIUM
  6. MYCOPHENOLAT [Concomitant]
  7. OMEPRAZOLE [Concomitant]
     Active Substance: OMEPRAZOLE
  8. SIMVASTATIN [Concomitant]
  9. TEMAZEPAM [Concomitant]

REACTIONS (1)
  - Hospitalisation [None]
